FAERS Safety Report 13839437 (Version 1)
Quarter: 2017Q3

REPORT INFORMATION
  Report Type: Spontaneous
  Country: GB (occurrence: GB)
  Receive Date: 20170807
  Receipt Date: 20170807
  Transmission Date: 20171127
  Serious: Yes (Hospitalization)
  Sender: FDA-Public Use
  Company Number: GB-TEVA-792727ACC

PATIENT
  Age: 79 Year
  Sex: Female
  Weight: 53.2 kg

DRUGS (7)
  1. LANSOPRAZOLE. [Concomitant]
     Active Substance: LANSOPRAZOLE
  2. ADIZEM [Concomitant]
     Active Substance: DILTIAZEM HYDROCHLORIDE
  3. AMOXICILLIN W/CLAVULANIC ACID [Suspect]
     Active Substance: AMOXICILLIN\CLAVULANIC ACID
     Indication: URINARY TRACT INFECTION
     Dosage: 1875 MILLIGRAM DAILY;
     Route: 048
     Dates: start: 20170706, end: 20170712
  4. NITROFURANTOIN. [Suspect]
     Active Substance: NITROFURANTOIN
     Indication: URINARY TRACT INFECTION
     Dosage: 100 MILLIGRAM DAILY; AT NIGHT
     Route: 048
     Dates: start: 20150301, end: 20170707
  5. CLOPIDOGREL [Concomitant]
     Active Substance: CLOPIDOGREL BISULFATE
  6. TROSPIUM CHLORIDE. [Concomitant]
     Active Substance: TROSPIUM CHLORIDE
  7. ISOSORBIDE. [Concomitant]
     Active Substance: ISOSORBIDE

REACTIONS (7)
  - Pain [Unknown]
  - Chills [Unknown]
  - Abdominal pain [Unknown]
  - Cholestasis [Recovering/Resolving]
  - Hyperhidrosis [Unknown]
  - Decreased appetite [Unknown]
  - Asthenia [Unknown]

NARRATIVE: CASE EVENT DATE: 20170706
